FAERS Safety Report 7673714 (Version 6)
Quarter: 2013Q4

REPORT INFORMATION
  Report Type: Spontaneous
  Country: JP (occurrence: None)
  Receive Date: 20101025
  Receipt Date: 20131211
  Transmission Date: 20140711
  Serious: Yes (Other)
  Sender: FDA-Public Use
  Company Number: 2010JP005968

PATIENT
  Age: 43 Year
  Sex: Female
  Weight: 51.8 kg

DRUGS (9)
  1. PROGRAF (TACROLIMUS) CAPSULE [Suspect]
     Indication: LUPUS NEPHRITIS
     Route: 048
     Dates: start: 20100416, end: 20120601
  2. PREDONINE [Suspect]
     Indication: LUPUS NEPHRITIS
     Route: 048
     Dates: start: 20090401
  3. TAKEPRON (LANSOPRAZOLE) [Concomitant]
  4. KETOPROFEN [Concomitant]
  5. ISODINE GARGLE (POVIDONE-IODINE) [Concomitant]
  6. FOSAMAX [Concomitant]
  7. LIPITOR [Concomitant]
  8. EPADEL (ETHYLICOSAPENTATE) [Concomitant]
  9. FERO-GRADUMET (FERROUS SULFATE) [Concomitant]

REACTIONS (1)
  - Osteonecrosis [None]
